FAERS Safety Report 7246265-2 (Version None)
Quarter: 2011Q1

REPORT INFORMATION
  Report Type: 
  Country: None (occurrence: None)
  Receive Date: 20110126
  Receipt Date: 20110113
  Transmission Date: 20110831
  Serious: Yes (Hospitalization, Other)
  Sender: FDA-Public Use
  Company Number: US-ELI_LILLY_AND_COMPANY-US201004005500

PATIENT
  Sex: Female

DRUGS (14)
  1. FORTEO [Suspect]
     Dosage: 20 UG, DAILY (1/D)
  2. DRONEDARONE [Concomitant]
  3. VITAMIN D [Concomitant]
  4. MAGNESIUM [Concomitant]
  5. COUMADIN [Concomitant]
  6. ASPIRIN [Concomitant]
  7. FORTEO [Suspect]
  8. LIPITOR [Concomitant]
  9. CALCIUM [Concomitant]
  10. ANTIHYPERTENSIVES [Concomitant]
  11. QUINAPRIL [Concomitant]
  12. METOPROLOL [Concomitant]
  13. FORTEO [Suspect]
     Indication: OSTEOPOROSIS
     Dosage: 20 UG, DAILY (1/D)
  14. SYNTHROID [Concomitant]

REACTIONS (13)
  - HAEMATOCRIT DECREASED [None]
  - CHOLELITHIASIS [None]
  - BLOOD PARATHYROID HORMONE INCREASED [None]
  - ATRIAL FIBRILLATION [None]
  - VIRAL INFECTION [None]
  - DYSGEUSIA [None]
  - CONSTIPATION [None]
  - NAUSEA [None]
  - BLOOD COUNT ABNORMAL [None]
  - DEHYDRATION [None]
  - PYREXIA [None]
  - ABDOMINAL PAIN UPPER [None]
  - PANCREATITIS [None]
